FAERS Safety Report 19891333 (Version 1)
Quarter: 2021Q3

REPORT INFORMATION
  Report Type: Spontaneous
  Country: HU (occurrence: HU)
  Receive Date: 20210928
  Receipt Date: 20210928
  Transmission Date: 20211014
  Serious: Yes (Death, Hospitalization, Other)
  Sender: FDA-Public Use
  Company Number: HU-AMGEN-HUNSP2021146922

PATIENT
  Age: 29 Year
  Sex: Female

DRUGS (10)
  1. CYCLOSPORIN [Concomitant]
     Active Substance: CYCLOSPORINE
  2. TACROLIMUS. [Concomitant]
     Active Substance: TACROLIMUS
  3. BUSULFAN. [Concomitant]
     Active Substance: BUSULFAN
  4. METHOTREXATE. [Concomitant]
     Active Substance: METHOTREXATE
  5. RUXOLITINIB [Concomitant]
     Active Substance: RUXOLITINIB
  6. BLINCYTO [Suspect]
     Active Substance: BLINATUMOMAB
     Indication: B PRECURSOR TYPE ACUTE LEUKAEMIA
     Dosage: 28 MICROGRAM
     Route: 065
     Dates: start: 20190912, end: 20191010
  7. FLUDARABIN [Concomitant]
     Active Substance: FLUDARABINE PHOSPHATE
  8. ATG [ANTITHYMOCYTE IMMUNOGLOBULIN] [Concomitant]
     Active Substance: LAPINE T-LYMPHOCYTE IMMUNE GLOBULIN
  9. MYCOPHENOLATE MOFETIL. [Concomitant]
     Active Substance: MYCOPHENOLATE MOFETIL
  10. THIOTEPA. [Concomitant]
     Active Substance: THIOTEPA

REACTIONS (10)
  - Anaemia [Unknown]
  - Neutropenia [Unknown]
  - Pneumonia [Fatal]
  - Urinary tract infection [Unknown]
  - BK virus infection [Unknown]
  - Upper respiratory tract infection [Unknown]
  - Graft versus host disease in gastrointestinal tract [Unknown]
  - Cystitis [Unknown]
  - Leukopenia [Recovered/Resolved]
  - Off label use [Unknown]

NARRATIVE: CASE EVENT DATE: 2019
